FAERS Safety Report 7310543-9 (Version None)
Quarter: 2011Q1

REPORT INFORMATION
  Report Type: 
  Country: None (occurrence: None)
  Receive Date: 20110224
  Receipt Date: 20101227
  Transmission Date: 20110831
  Serious: No
  Sender: FDA-Public Use
  Company Number: US-BRISTOL-MYERS SQUIBB COMPANY-15450844

PATIENT
  Age: 67 Year
  Sex: Male
  Weight: 75 kg

DRUGS (9)
  1. HYDROCHLOROTHIAZIDE [Concomitant]
  2. ANDROGEL [Concomitant]
  3. GLYBURIDE [Concomitant]
     Dosage: TAB
  4. LISINOPRIL [Concomitant]
     Dosage: LIPRINOSIL
  5. ONGLYZA [Suspect]
     Dosage: ONGOING
     Dates: start: 20101216, end: 20101225
  6. CADUET [Concomitant]
     Dosage: 1DF: 40/10
  7. ASPIRIN [Concomitant]
  8. ALLEGRA [Concomitant]
  9. METFORMIN HCL [Suspect]

REACTIONS (1)
  - DRUG INEFFECTIVE [None]
